FAERS Safety Report 24370075 (Version 1)
Quarter: 2024Q3

REPORT INFORMATION
  Report Type: Spontaneous
  Country: US (occurrence: US)
  Receive Date: 20240927
  Receipt Date: 20240927
  Transmission Date: 20241017
  Serious: Yes (Other)
  Sender: INSMED
  Company Number: US-INSMED, INC.-2024-03776-US

PATIENT

DRUGS (1)
  1. ARIKAYCE [Suspect]
     Active Substance: AMIKACIN
     Indication: Mycobacterium avium complex infection
     Dosage: UNK, UNK
     Route: 055

REACTIONS (7)
  - Optic neuropathy [Recovering/Resolving]
  - Chronic obstructive pulmonary disease [Recovered/Resolved]
  - Pneumonia [Unknown]
  - Pneumonia [Recovered/Resolved]
  - Altered visual depth perception [Not Recovered/Not Resolved]
  - Immunoglobulins decreased [Recovering/Resolving]
  - Unevaluable event [Unknown]
